FAERS Safety Report 5098968-6 (Version None)
Quarter: 2006Q3

REPORT INFORMATION
  Report Type: 
  Country: None (occurrence: None)
  Receive Date: 20060907
  Receipt Date: 20060601
  Transmission Date: 20061208
  Serious: Yes (Hospitalization, Other)
  Sender: FDA-Public Use
  Company Number: DE-ABBOTT-06P-062-0334857-00

PATIENT
  Sex: Female

DRUGS (3)
  1. ERGENYL CHRONO TABLETS [Suspect]
     Indication: DRUG USE FOR UNKNOWN INDICATION
     Route: 048
     Dates: end: 20060101
  2. LEVOTHYROXINE SODIUM [Concomitant]
     Indication: UNEVALUABLE EVENT
     Route: 048
  3. AMISULPRIDE [Concomitant]
     Indication: PSYCHOTIC DISORDER
     Route: 048

REACTIONS (4)
  - DIZZINESS [None]
  - ENCEPHALOPATHY [None]
  - GAIT DISTURBANCE [None]
  - PSYCHOMOTOR SKILLS IMPAIRED [None]
